FAERS Safety Report 13389887 (Version 1)
Quarter: 2017Q1

REPORT INFORMATION
  Report Type: Other
  Country: FR (occurrence: FR)
  Receive Date: 20170331
  Receipt Date: 20170331
  Transmission Date: 20170429
  Serious: Yes (Other)
  Sender: FDA-Public Use
  Company Number: FR-ACTELION-A-CH2017-151459

PATIENT
  Age: 55 Year
  Sex: Female

DRUGS (2)
  1. TRACLEER [Suspect]
     Active Substance: BOSENTAN
     Indication: SYSTEMIC SCLERODERMA
     Dosage: 125 MG, BID
     Route: 048
     Dates: start: 2010
  2. ILOPROST [Concomitant]
     Active Substance: ILOPROST

REACTIONS (6)
  - Pain [Recovering/Resolving]
  - Finger amputation [Unknown]
  - Osteolysis [Recovering/Resolving]
  - Cardiac failure [Unknown]
  - Myocardial infarction [Unknown]
  - Skin ulcer [Recovering/Resolving]

NARRATIVE: CASE EVENT DATE: 2012
